FAERS Safety Report 5973030-6 (Version None)
Quarter: 2008Q4

REPORT INFORMATION
  Report Type: 
  Country: None (occurrence: None)
  Receive Date: 20081201
  Receipt Date: 20081124
  Transmission Date: 20090506
  Serious: Yes (Hospitalization)
  Sender: FDA-Public Use
  Company Number: CN-ASTRAZENECA-2008AP09090

PATIENT
  Sex: Female

DRUGS (2)
  1. NAROPIN [Suspect]
     Indication: ANAESTHESIA
     Route: 008
     Dates: start: 20080101, end: 20080101
  2. BUPIVACAINE [Concomitant]
     Indication: ANAESTHESIA
     Dates: start: 20080101, end: 20080101

REACTIONS (2)
  - HYPOTONIA [None]
  - JOINT RANGE OF MOTION DECREASED [None]
